FAERS Safety Report 7537014-9 (Version None)
Quarter: 2011Q2

REPORT INFORMATION
  Report Type: 
  Country: None (occurrence: None)
  Receive Date: 20110609
  Receipt Date: 20110526
  Transmission Date: 20111010
  Serious: Yes (Other)
  Sender: FDA-Public Use
  Company Number: PHHY2011CA41449

PATIENT
  Sex: Female

DRUGS (3)
  1. IMOVANE [Concomitant]
  2. ZOLEDRONIC ACID [Suspect]
     Indication: OSTEOPOROSIS
     Route: 042
     Dates: start: 20100827
  3. OXAZEPAM [Concomitant]

REACTIONS (5)
  - ARRHYTHMIA [None]
  - TACHYCARDIA [None]
  - ATRIAL TACHYCARDIA [None]
  - NON-HODGKIN'S LYMPHOMA [None]
  - PALPITATIONS [None]
